FAERS Safety Report 6062698-4 (Version None)
Quarter: 2009Q1

REPORT INFORMATION
  Report Type: 
  Country: None (occurrence: None)
  Receive Date: 20090203
  Receipt Date: 20090122
  Transmission Date: 20090719
  Serious: Yes (Hospitalization)
  Sender: FDA-Public Use
  Company Number: PHHO2008NZ04353

PATIENT
  Sex: Male
  Weight: 132.25 kg

DRUGS (1)
  1. TASIGNA [Suspect]
     Indication: CHRONIC MYELOID LEUKAEMIA
     Dosage: 400 MG, BID
     Route: 048
     Dates: start: 20071023

REACTIONS (7)
  - ATRIAL FIBRILLATION [None]
  - CORONARY ARTERY DISEASE [None]
  - ELECTROCARDIOGRAM Q WAVES [None]
  - ELECTROCARDIOGRAM T WAVE INVERSION [None]
  - MYOCARDIAL INFARCTION [None]
  - PALPITATIONS [None]
  - TROPONIN T INCREASED [None]
